FAERS Safety Report 5309319-3 (Version None)
Quarter: 2007Q2

REPORT INFORMATION
  Report Type: 
  Country: None (occurrence: None)
  Receive Date: 20070425
  Receipt Date: 20070425
  Transmission Date: 20071010
  Serious: Yes (Hospitalization)
  Sender: FDA-Public Use
  Company Number: None

PATIENT
  Age: 71 Year
  Sex: Female
  Weight: 85.7298 kg

DRUGS (8)
  1. WELCHOL [Suspect]
     Indication: BLOOD CHOLESTEROL
     Dosage: 1875 (#3-625MGTAB) MORNING + EVENING BY MOUTH
     Route: 048
     Dates: start: 20070327, end: 20070406
  2. ALPRAZOLAM [Concomitant]
  3. AMLODIPINE [Concomitant]
  4. METOPROLOL SUCCINATE [Concomitant]
  5. HYDROCHLOROTHIAZIDE [Concomitant]
  6. OMEPRAZOLE [Concomitant]
  7. POTASSIUM CHLORIDE [Concomitant]
  8. PIROXICAM [Concomitant]

REACTIONS (6)
  - BLOOD POTASSIUM DECREASED [None]
  - HEADACHE [None]
  - MEMORY IMPAIRMENT [None]
  - MENTAL IMPAIRMENT [None]
  - RASH [None]
  - VISUAL DISTURBANCE [None]
